FAERS Safety Report 24376313 (Version 1)
Quarter: 2024Q3

REPORT INFORMATION
  Report Type: Spontaneous
  Country: US (occurrence: US)
  Receive Date: 20240930
  Receipt Date: 20240930
  Transmission Date: 20241016
  Serious: No
  Sender: GLAXOSMITHKLINE
  Company Number: US-GLAXOSMITHKLINE-US2024AMR118418

PATIENT
  Sex: Female

DRUGS (2)
  1. ZEJULA [Suspect]
     Active Substance: NIRAPARIB
     Indication: Ovarian cancer
     Dosage: 2 DF, QD (200 MG)
     Route: 048
     Dates: start: 20240904
  2. ZEJULA [Suspect]
     Active Substance: NIRAPARIB
     Dosage: 1 DF, QD  (100 MG)
     Route: 048

REACTIONS (7)
  - Thirst [Unknown]
  - Pruritus [Unknown]
  - Hot flush [Unknown]
  - Constipation [Unknown]
  - Fatigue [Unknown]
  - Dry skin [Unknown]
  - Insomnia [Unknown]
